FAERS Safety Report 8594796-5 (Version None)
Quarter: 2012Q3

REPORT INFORMATION
  Report Type: 
  Country: None (occurrence: None)
  Receive Date: 20120801
  Receipt Date: 20120720
  Transmission Date: 20120928
  Serious: Yes (Hospitalization)
  Sender: FDA-Public Use
  Company Number: FR-008774

PATIENT
  Age: 35 Year
  Sex: Male

DRUGS (5)
  1. TYSABRI [Suspect]
     Indication: MULTIPLE SCLEROSIS
     Dosage: (300 MG FOR 4 YEARS INTRAVENOUS (NOT OTHERWISE SPECIFIED))
     Route: 042
     Dates: start: 20080201, end: 20120518
  2. MINIRIN [Suspect]
     Indication: PRODUCT USED FOR UNKNOWN INDICATION
     Dosage: (0.1 MG QD ORAL)
     Route: 048
     Dates: start: 20110401
  3. LYRICA [Suspect]
     Indication: PRODUCT USED FOR UNKNOWN INDICATION
     Dosage: (50 MG ORAL)
     Route: 048
     Dates: start: 20110401
  4. TAMSULOSIN HCL [Suspect]
     Indication: PRODUCT USED FOR UNKNOWN INDICATION
     Dosage: (0.4 MG ORAL)
     Route: 048
     Dates: start: 20090101
  5. VESICARE [Suspect]
     Indication: PRODUCT USED FOR UNKNOWN INDICATION
     Dosage: (5 MG ORAL)
     Route: 048

REACTIONS (2)
  - PANCREATITIS ACUTE [None]
  - CHOLELITHIASIS [None]
